FAERS Safety Report 11053853 (Version 1)
Quarter: 2015Q2

REPORT INFORMATION
  Report Type: Spontaneous
  Country: GB (occurrence: GB)
  Receive Date: 20150421
  Receipt Date: 20150421
  Transmission Date: 20150821
  Serious: Yes (Other)
  Sender: FDA-Public Use
  Company Number: ALCN2015GB002498

PATIENT
  Age: 65 Year
  Sex: Female
  Weight: 55.33 kg

DRUGS (1)
  1. TOBRADEX [Suspect]
     Active Substance: DEXAMETHASONE\TOBRAMYCIN
     Indication: CATARACT
     Dosage: 1 GTT, QID
     Route: 047
     Dates: start: 20130219, end: 20130312

REACTIONS (4)
  - Deafness [Not Recovered/Not Resolved]
  - Ear pain [Recovered/Resolved]
  - Headache [Recovered/Resolved]
  - Tinnitus [Not Recovered/Not Resolved]

NARRATIVE: CASE EVENT DATE: 20130224
